FAERS Safety Report 17827293 (Version 1)
Quarter: 2020Q2

REPORT INFORMATION
  Report Type: Spontaneous
  Country: AU (occurrence: AU)
  Receive Date: 20200527
  Receipt Date: 20200527
  Transmission Date: 20200714
  Serious: Yes (Other)
  Sender: FDA-Public Use
  Company Number: AU-SA-2020SA131905

PATIENT
  Age: 46 Year
  Sex: Female

DRUGS (2)
  1. ARAVA [Suspect]
     Active Substance: LEFLUNOMIDE
     Dosage: UNK UNK, QOD
  2. ARAVA [Suspect]
     Active Substance: LEFLUNOMIDE
     Dosage: 10 MG, QOD

REACTIONS (6)
  - Hypoaesthesia oral [Unknown]
  - Pain [Unknown]
  - Dysgeusia [Unknown]
  - Alopecia [Unknown]
  - Paraesthesia oral [Unknown]
  - Condition aggravated [Unknown]
